FAERS Safety Report 21617124 (Version 1)
Quarter: 2022Q4

REPORT INFORMATION
  Report Type: Report from Study
  Country: US (occurrence: None)
  Receive Date: 20221118
  Receipt Date: 20221118
  Transmission Date: 20230113
  Serious: Yes (Death)
  Sender: FDA-Public Use
  Company Number: 2022A382935

PATIENT
  Age: 24230 Day
  Sex: Male

DRUGS (3)
  1. TAGRISSO [Suspect]
     Active Substance: OSIMERTINIB
     Indication: Lung carcinoma cell type unspecified stage 0
     Route: 048
     Dates: start: 20221011
  2. TAGRISSO [Suspect]
     Active Substance: OSIMERTINIB
     Indication: Bone cancer
     Route: 048
     Dates: start: 20221011
  3. TAGRISSO [Suspect]
     Active Substance: OSIMERTINIB
     Indication: Chronic kidney disease
     Route: 048
     Dates: start: 20221011

REACTIONS (1)
  - Death [Fatal]

NARRATIVE: CASE EVENT DATE: 20221113
